FAERS Safety Report 9841224 (Version 1)
Quarter: 2013Q4

REPORT INFORMATION
  Report Type: Spontaneous
  Country: US (occurrence: None)
  Receive Date: 20131219
  Receipt Date: 20131219
  Transmission Date: 20140711
  Serious: Yes (Other)
  Sender: FDA-Public Use
  Company Number: 163-20785-11050918

PATIENT
  Age: 52 Year
  Sex: Male

DRUGS (2)
  1. THALIDOMIDE [Suspect]
     Indication: PLASMA CELL MYELOMA
     Dates: start: 20011103, end: 20011202
  2. BORTEZOMB (BORTEZOMIB) (UNKNOWN) [Concomitant]
     Indication: PLASMA CELL MYELOMA

REACTIONS (3)
  - Deep vein thrombosis [None]
  - Toxicity to various agents [None]
  - Plasma cell myeloma [None]
